FAERS Safety Report 5045104-8 (Version None)
Quarter: 2006Q3

REPORT INFORMATION
  Report Type: 
  Country: None (occurrence: None)
  Receive Date: 20060707
  Receipt Date: 20060705
  Transmission Date: 20061208
  Serious: Yes (Death, Hospitalization)
  Sender: FDA-Public Use
  Company Number: NO-SANOFI-SYNTHELABO-F01200601588

PATIENT
  Sex: Female

DRUGS (3)
  1. BEVACIZUMAB OR PLACEBO [Suspect]
     Dosage: UNK
     Route: 042
     Dates: start: 20040628, end: 20040628
  2. CAPECITABINE [Suspect]
     Route: 048
     Dates: start: 20040628, end: 20040628
  3. OXALIPLATIN [Suspect]
     Indication: COLORECTAL CANCER METASTATIC
     Dosage: Q3W
     Route: 042
     Dates: start: 20040628, end: 20040628

REACTIONS (9)
  - C-REACTIVE PROTEIN INCREASED [None]
  - DEHYDRATION [None]
  - DIARRHOEA [None]
  - HYPOKALAEMIA [None]
  - LEUKOPENIA [None]
  - NAUSEA [None]
  - NEUTROPENIA [None]
  - THROMBOCYTOPENIA [None]
  - VIRAL INFECTION [None]
